FAERS Safety Report 16415243 (Version 1)
Quarter: 2019Q2

REPORT INFORMATION
  Report Type: Spontaneous
  Country: CH (occurrence: CH)
  Receive Date: 20190611
  Receipt Date: 20190611
  Transmission Date: 20190711
  Serious: Yes (Hospitalization, Other)
  Sender: FDA-Public Use
  Company Number: CH-PFIZER INC-2019240600

PATIENT
  Age: 56 Year
  Sex: Female
  Weight: 75 kg

DRUGS (3)
  1. SERETIDE [Concomitant]
     Active Substance: FLUTICASONE PROPIONATE\SALMETEROL XINAFOATE
     Dosage: 250 UG, 2X/DAY (2-0-2-0)
     Route: 055
  2. TEMESTA (LORAZEPAM) [Suspect]
     Active Substance: LORAZEPAM
     Dosage: 2 MG, UNK
     Route: 041
     Dates: start: 20190330, end: 20190330
  3. ALVESCO [Concomitant]
     Active Substance: CICLESONIDE
     Dosage: 160 UG, 1X/DAY (1-0-0-0)
     Route: 055

REACTIONS (4)
  - Amnesia [Unknown]
  - Vertigo [Unknown]
  - Dysarthria [Recovered/Resolved]
  - Confusional state [Recovered/Resolved]

NARRATIVE: CASE EVENT DATE: 20190330
